FAERS Safety Report 5455557-9 (Version None)
Quarter: 2007Q3

REPORT INFORMATION
  Report Type: 
  Country: None (occurrence: None)
  Receive Date: 20070913
  Receipt Date: 20070913
  Transmission Date: 20080115
  Serious: Yes (Life-Threatening, Hospitalization)
  Sender: FDA-Public Use
  Company Number: None

PATIENT
  Age: 39 Year
  Sex: Female
  Weight: 68.0396 kg

DRUGS (2)
  1. HYDROCORTISONE [Suspect]
     Indication: BURNING SENSATION
     Dosage: JUST ENOUGHT TO COVER LIPS  TWICE  TOP
     Route: 061
     Dates: start: 20070910, end: 20070910
  2. HYDROCORTISONE [Suspect]
     Indication: LIP SWELLING
     Dosage: JUST ENOUGHT TO COVER LIPS  TWICE  TOP
     Route: 061
     Dates: start: 20070910, end: 20070910

REACTIONS (6)
  - APPLICATION SITE IRRITATION [None]
  - DYSPHAGIA [None]
  - LIP SWELLING [None]
  - SPEECH DISORDER [None]
  - SWOLLEN TONGUE [None]
  - URTICARIA [None]
